FAERS Safety Report 21371867 (Version 1)
Quarter: 2022Q3

REPORT INFORMATION
  Report Type: Spontaneous
  Country: US (occurrence: US)
  Receive Date: 20220923
  Receipt Date: 20220923
  Transmission Date: 20221026
  Serious: No
  Sender: FDA-Public Use
  Company Number: US-SA-SAC20220920001278

PATIENT
  Sex: Female
  Weight: 22.31 kg

DRUGS (1)
  1. DUPIXENT [Suspect]
     Active Substance: DUPILUMAB
     Indication: Dermatitis allergic
     Dosage: DOSE AND ROUTE PRESCRIBED: INJECT THE CONTENTS OF 1 SYRINGE (200 MG) FREQUENCY: EVERY 2 WEEKS
     Route: 058

REACTIONS (3)
  - Pruritus [Not Recovered/Not Resolved]
  - Therapeutic response shortened [Unknown]
  - Product use issue [Unknown]
